FAERS Safety Report 6051273-3 (Version None)
Quarter: 2009Q1

REPORT INFORMATION
  Report Type: 
  Country: None (occurrence: None)
  Receive Date: 20090126
  Receipt Date: 20090114
  Transmission Date: 20090719
  Serious: Yes (Hospitalization)
  Sender: FDA-Public Use
  Company Number: US-BIOGENIDEC-2008BI015035

PATIENT
  Age: 44 Year
  Sex: Female
  Weight: 111 kg

DRUGS (19)
  1. TYSABRI [Suspect]
     Indication: MULTIPLE SCLEROSIS
     Route: 042
     Dates: start: 20070517
  2. VERAPAMIL [Concomitant]
     Route: 048
  3. BACLOFEN [Concomitant]
     Indication: MUSCLE SPASTICITY
     Route: 048
  4. PAMELOR [Concomitant]
     Indication: AFFECTIVE DISORDER
     Route: 048
  5. VALTREX [Concomitant]
     Indication: ANTIVIRAL PROPHYLAXIS
  6. CYMBALTA [Concomitant]
     Indication: AFFECTIVE DISORDER
     Route: 048
  7. LYRICA [Concomitant]
     Indication: NEURALGIA
     Route: 048
  8. NEXIUM [Concomitant]
     Route: 048
  9. TOPROL-XL [Concomitant]
     Indication: HYPERTENSION
     Route: 048
  10. ASPIRIN [Concomitant]
     Indication: PROPHYLAXIS
     Route: 048
  11. ANTIVERT [Concomitant]
     Indication: VERTIGO
     Route: 048
  12. UROXATRAL [Concomitant]
     Route: 048
  13. DARVOCET [Concomitant]
     Route: 048
  14. VALIUM [Concomitant]
     Indication: VERTIGO
     Route: 048
  15. FENTANYL CITRATE [Concomitant]
     Indication: PAIN
     Route: 062
  16. ATARAX [Concomitant]
     Route: 048
  17. DIOVAN [Concomitant]
     Indication: HYPERTENSION
     Route: 048
  18. CELEBREX [Concomitant]
     Route: 048
  19. ZOFRAN [Concomitant]
     Route: 048

REACTIONS (1)
  - OVERDOSE [None]
